FAERS Safety Report 5009835-8 (Version None)
Quarter: 2006Q2

REPORT INFORMATION
  Report Type: 
  Country: None (occurrence: None)
  Receive Date: 20060522
  Receipt Date: 20060511
  Transmission Date: 20061013
  Serious: Yes (Death)
  Sender: FDA-Public Use
  Company Number: 2006-DE-02000GD

PATIENT
  Age: 6 Year
  Sex: Female

DRUGS (2)
  1. SALBUTAMOL (SALBUTAMOL) [Suspect]
     Indication: ASTHMA
     Dosage: 40 PUFFS PER DAY , IH
     Route: 055
  2. FLUTICASONE PROPIONATE [Concomitant]

REACTIONS (10)
  - BREATH SOUNDS ABNORMAL [None]
  - CARDIAC ARREST [None]
  - CHEST X-RAY ABNORMAL [None]
  - FALL [None]
  - HYPERCAPNIA [None]
  - LUNG HYPERINFLATION [None]
  - METABOLIC ACIDOSIS [None]
  - OXYGEN SATURATION DECREASED [None]
  - PUPIL FIXED [None]
  - RESPIRATORY ACIDOSIS [None]
